FAERS Safety Report 22133510 (Version 1)
Quarter: 2023Q1

REPORT INFORMATION
  Report Type: Spontaneous
  Country: KR (occurrence: KR)
  Receive Date: 20230324
  Receipt Date: 20230324
  Transmission Date: 20230417
  Serious: Yes (Hospitalization, Other)
  Sender: FDA-Public Use
  Company Number: KR-CELLTRION INC.-2023KR005950

PATIENT

DRUGS (13)
  1. INFLIXIMAB [Suspect]
     Active Substance: INFLIXIMAB
     Indication: Crohn^s disease
     Dosage: UNK
     Route: 058
     Dates: start: 20221013, end: 20230202
  2. INFLIXIMAB [Suspect]
     Active Substance: INFLIXIMAB
     Dosage: UNK
     Route: 058
     Dates: start: 20221013, end: 20230216
  3. INFLIXIMAB [Suspect]
     Active Substance: INFLIXIMAB
     Dosage: 120 MG, QD
     Route: 058
     Dates: start: 20230316, end: 20230316
  4. CALCIUM CHLORIDE\POTASSIUM CHLORIDE\SODIUM CHLORIDE\SODIUM LACTATE [Concomitant]
     Active Substance: CALCIUM CHLORIDE\POTASSIUM CHLORIDE\SODIUM CHLORIDE\SODIUM LACTATE
     Indication: Dehydration
     Dosage: 1 BAG, CONTINUOUSLY
     Route: 042
     Dates: start: 20230214, end: 20230214
  5. CALCIUM CHLORIDE\POTASSIUM CHLORIDE\SODIUM CHLORIDE\SODIUM LACTATE [Concomitant]
     Active Substance: CALCIUM CHLORIDE\POTASSIUM CHLORIDE\SODIUM CHLORIDE\SODIUM LACTATE
     Dosage: 1 BAG, CONTINUOUSLY
     Route: 042
     Dates: start: 20230316, end: 20230316
  6. NADOXOL [Concomitant]
     Indication: Prophylaxis
     Dosage: 1 AMPLE BID
     Route: 042
     Dates: start: 20230214, end: 20230214
  7. GASTER [CROMOGLICATE SODIUM] [Concomitant]
     Indication: Prophylaxis
     Dosage: 20 MG, BID
     Route: 042
     Dates: start: 20230214, end: 20230214
  8. GASTER [CROMOGLICATE SODIUM] [Concomitant]
     Dosage: 20 MG, BID
     Route: 048
     Dates: start: 20230316, end: 20230316
  9. METRONIDAZOLE [Concomitant]
     Active Substance: METRONIDAZOLE
     Indication: Antibiotic prophylaxis
     Dosage: 1 BAG QD
     Route: 042
     Dates: start: 20230214, end: 20230214
  10. CEFAZOL [Concomitant]
     Indication: Antibiotic prophylaxis
     Dosage: 1 GRAM, BID
     Route: 042
     Dates: start: 20230214, end: 20230214
  11. AZABIO [Concomitant]
     Indication: Crohn^s disease
     Dosage: 1 TAB, QD
     Route: 048
     Dates: start: 20230214
  12. FLASINYL [Concomitant]
     Indication: Antibiotic prophylaxis
     Dosage: 1 TAB, TID
     Route: 048
     Dates: start: 20230215, end: 20230216
  13. CEFOTETAN [Concomitant]
     Active Substance: CEFOTETAN DISODIUM
     Indication: Antibiotic prophylaxis
     Dosage: 1 AMPLE QD
     Route: 042
     Dates: start: 20230316, end: 20230316

REACTIONS (3)
  - Fistula [Not Recovered/Not Resolved]
  - Anal abscess [Not Recovered/Not Resolved]
  - Proctalgia [Unknown]

NARRATIVE: CASE EVENT DATE: 20230316
